FAERS Safety Report 9311701 (Version 1)
Quarter: 2013Q1

REPORT INFORMATION
  Report Type: Spontaneous
  Country: US (occurrence: None)
  Receive Date: 20130116
  Receipt Date: 20130116
  Transmission Date: 20140127
  Serious: Yes (Death, Other)
  Sender: FDA-Public Use
  Company Number: TPA2012A08537

PATIENT
  Age: 69 Year
  Sex: Female
  Weight: 111.13 kg

DRUGS (7)
  1. ACTOS (PIOGLITAZONE HYDROCHLORIDE) [Suspect]
     Indication: TYPE 2 DIABETES MELLITUS
     Dates: start: 2000
  2. METFORMIN (METFORMIN) [Concomitant]
     Dates: start: 2000
  3. AVANDIA (ROSIGLITAZONE MALEATE) [Concomitant]
  4. GLUCOPHAGE (METFORMIN HYDROCHLORIDE) [Concomitant]
  5. LISPRO INSULIN (INSULIN LISPRO) [Concomitant]
  6. DIABETA (GLIBENCLAMIDE0 [Concomitant]
  7. LANTUS (INSULIN GLARGINE) [Concomitant]

REACTIONS (2)
  - Metastatic carcinoma of the bladder [None]
  - Disease complication [None]
